FAERS Safety Report 11342738 (Version 1)
Quarter: 2015Q3

REPORT INFORMATION
  Report Type: Report from Study
  Country: US (occurrence: US)
  Receive Date: 20150805
  Receipt Date: 20150805
  Transmission Date: 20151125
  Serious: Yes (Hospitalization)
  Sender: FDA-Public Use
  Company Number: US-ABBVIE-15K-163-1437113-00

PATIENT
  Age: 59 Year
  Sex: Male
  Weight: 97.61 kg

DRUGS (4)
  1. PRAVASTATIN [Concomitant]
     Active Substance: PRAVASTATIN\PRAVASTATIN SODIUM
     Indication: VENOUS OCCLUSION
  2. HYDROXYCHLOROQUINE [Concomitant]
     Active Substance: HYDROXYCHLOROQUINE
     Indication: SYSTEMIC LUPUS ERYTHEMATOSUS
  3. PNEUMONIA VACCINE [Concomitant]
     Active Substance: PNEUMOCOCCAL VACCINE POLYVALENT
     Indication: PRODUCT USED FOR UNKNOWN INDICATION
     Dates: start: 2014, end: 2014
  4. HUMIRA [Suspect]
     Active Substance: ADALIMUMAB
     Indication: ANKYLOSING SPONDYLITIS
     Route: 058
     Dates: start: 201410, end: 201505

REACTIONS (5)
  - Respiratory tract congestion [Recovered/Resolved]
  - Lower respiratory tract infection [Recovered/Resolved]
  - Immunodeficiency [Unknown]
  - Fatigue [Recovering/Resolving]
  - Pneumonia cryptococcal [Recovering/Resolving]

NARRATIVE: CASE EVENT DATE: 20150522
